FAERS Safety Report 12162018 (Version 2)
Quarter: 2016Q1

REPORT INFORMATION
  Report Type: Spontaneous
  Country: DE (occurrence: DE)
  Receive Date: 20160309
  Receipt Date: 20160315
  Transmission Date: 20160526
  Serious: Yes (Hospitalization)
  Sender: FDA-Public Use
  Company Number: DE-LEO PHARMA-240596

PATIENT
  Age: 80 Year
  Sex: Male
  Weight: 100 kg

DRUGS (3)
  1. PICATO [Suspect]
     Active Substance: INGENOL MEBUTATE
     Indication: ACTINIC KERATOSIS
     Route: 061
     Dates: start: 20160224, end: 20160224
  2. NEBIVOLOL. [Concomitant]
     Active Substance: NEBIVOLOL
     Indication: HYPERTENSION
  3. KARVEZIDE [Concomitant]
     Active Substance: HYDROCHLOROTHIAZIDE\IRBESARTAN
     Indication: HYPERTENSION

REACTIONS (5)
  - Application site pain [Recovered/Resolved]
  - Application site erythema [Recovered/Resolved]
  - Incorrect drug administration duration [Unknown]
  - Hypersensitivity [Recovered/Resolved]
  - Application site extravasation [Recovered/Resolved]

NARRATIVE: CASE EVENT DATE: 20160224
